FAERS Safety Report 5056224-6 (Version None)
Quarter: 2006Q3

REPORT INFORMATION
  Report Type: 
  Country: None (occurrence: None)
  Receive Date: 20060717
  Receipt Date: 20060705
  Transmission Date: 20061208
  Serious: Yes (Hospitalization)
  Sender: FDA-Public Use
  Company Number: MEDI-0004743

PATIENT
  Age: 2 Month
  Sex: Female
  Weight: 4.115 kg

DRUGS (1)
  1. SYNAGIS [Suspect]
     Indication: ANTIVIRAL PROPHYLAXIS
     Dosage: INTRAMUSCULAR
     Route: 030
     Dates: start: 20051119, end: 20051119

REACTIONS (3)
  - APNOEA [None]
  - BRADYCARDIA [None]
  - BRONCHIOLITIS [None]
